FAERS Safety Report 17016484 (Version 2)
Quarter: 2020Q4

REPORT INFORMATION
  Report Type: Spontaneous
  Country: US (occurrence: US)
  Receive Date: 20191111
  Receipt Date: 20201120
  Transmission Date: 20210113
  Serious: No
  Sender: FDA-Public Use
  Company Number: US-PFIZER INC-2019483561

PATIENT
  Age: 68 Year
  Sex: Male

DRUGS (1)
  1. LYRICA [Suspect]
     Active Substance: PREGABALIN
     Dosage: 200 MG, 3X/DAY, (1 CAPSULE 200 MG BY MOUTH, THREE TIMES A DAY)
     Route: 048

REACTIONS (2)
  - Treatment failure [Unknown]
  - Hypoacusis [Unknown]
